FAERS Safety Report 5589368-0 (Version None)
Quarter: 2008Q1

REPORT INFORMATION
  Report Type: 
  Country: None (occurrence: None)
  Receive Date: 20080114
  Receipt Date: 20080104
  Transmission Date: 20080703
  Serious: Yes (Hospitalization)
  Sender: FDA-Public Use
  Company Number: IT-NOVOPROD-270788

PATIENT
  Sex: Male

DRUGS (3)
  1. ACTRAPID NOVOLET [Suspect]
     Indication: DIABETES MELLITUS
     Dosage: 41 IU, QD
     Dates: start: 20070101, end: 20071016
  2. ACTRAPID NOVOLET [Suspect]
     Dosage: 88 IU, QD
     Dates: start: 20071017, end: 20071106
  3. ALIFLUS                            /01420901/ [Concomitant]
     Dosage: 2 U, QD
     Route: 055

REACTIONS (2)
  - HEAD INJURY [None]
  - HYPOGLYCAEMIA [None]
